FAERS Safety Report 5078871-8 (Version None)
Quarter: 2006Q3

REPORT INFORMATION
  Report Type: 
  Country: None (occurrence: None)
  Receive Date: 20060808
  Receipt Date: 20060801
  Transmission Date: 20061208
  Serious: Yes (Death)
  Sender: FDA-Public Use
  Company Number: 2006RR-03113

PATIENT
  Sex: Male

DRUGS (4)
  1. CODEINE PHOSPHATE  (CODEINE PHOSPHATE ) TABLET [Suspect]
  2. DIAZEPAM [Suspect]
  3. DICLOFENAC SODIUM [Suspect]
  4. EFFEXOR [Suspect]

REACTIONS (2)
  - COMPLETED SUICIDE [None]
  - DRUG INTERACTION [None]
